FAERS Safety Report 7822656-3 (Version None)
Quarter: 2011Q4

REPORT INFORMATION
  Report Type: 
  Country: None (occurrence: None)
  Receive Date: 20111018
  Receipt Date: 20111003
  Transmission Date: 20120403
  Serious: Yes (Other)
  Sender: FDA-Public Use
  Company Number: PT-ROCHE-1001786

PATIENT
  Age: 20 Month
  Sex: Male

DRUGS (2)
  1. AMIKACIN [Concomitant]
  2. CEFTRIAXONE [Suspect]
     Indication: SEPSIS
     Route: 042

REACTIONS (1)
  - HAEMOLYTIC ANAEMIA [None]
